FAERS Safety Report 6929187-3 (Version None)
Quarter: 2010Q3

REPORT INFORMATION
  Report Type: 
  Country: None (occurrence: None)
  Receive Date: 20100817
  Receipt Date: 20100810
  Transmission Date: 20110219
  Serious: Yes (Other)
  Sender: FDA-Public Use
  Company Number: US-AMGEN-QUU407799

PATIENT
  Sex: Male
  Weight: 65.8 kg

DRUGS (4)
  1. NPLATE [Suspect]
     Indication: CHRONIC LYMPHOCYTIC LEUKAEMIA
     Route: 058
     Dates: start: 20090625, end: 20090811
  2. BONIVA [Concomitant]
     Dates: start: 20091105
  3. VITAMIN D [Concomitant]
     Dates: start: 20081219
  4. CALCIUM [Concomitant]
     Dates: start: 20081219

REACTIONS (3)
  - DRUG INEFFECTIVE [None]
  - SPLENECTOMY [None]
  - THERAPEUTIC RESPONSE DECREASED [None]
